FAERS Safety Report 12984203 (Version 4)
Quarter: 2019Q1

REPORT INFORMATION
  Report Type: Spontaneous
  Country: US (occurrence: US)
  Receive Date: 20161129
  Receipt Date: 20190124
  Transmission Date: 20190417
  Serious: Yes (Hospitalization, Disabling)
  Sender: FDA-Public Use
  Company Number: US-ENDO PHARMACEUTICALS INC.-2016-005830

PATIENT
  Age: 63 Year
  Sex: Male
  Weight: 95.24 kg

DRUGS (12)
  1. TESTIM [Suspect]
     Active Substance: TESTOSTERONE
     Indication: ANDROGEN REPLACEMENT THERAPY
     Dosage: UNK UNKNOWN, DAILY AS DIRECTED
     Route: 062
     Dates: start: 20090429, end: 20121211
  2. FORTESTA [Suspect]
     Active Substance: TESTOSTERONE
     Indication: ANDROGEN REPLACEMENT THERAPY
     Dosage: 10 MG, DAILY
     Route: 061
  3. NIACIN ER [Concomitant]
     Active Substance: NIACIN
     Indication: VITAMIN SUPPLEMENTATION
     Dosage: UNK UNKNOWN, UNKNOWN
     Route: 065
     Dates: start: 2005
  4. FISH OIL [Concomitant]
     Active Substance: FISH OIL
     Indication: VITAMIN SUPPLEMENTATION
     Dosage: UNK UNKNOWN, UNKNOWN
     Route: 065
     Dates: start: 1990
  5. LOSARTAN. [Concomitant]
     Active Substance: LOSARTAN
     Indication: BLOOD PRESSURE MEASUREMENT
     Dosage: UNK UNKNOWN, UNKNOWN
     Route: 065
     Dates: start: 1995
  6. ANDROGEL [Suspect]
     Active Substance: TESTOSTERONE
     Indication: ANDROGEN REPLACEMENT THERAPY
     Dosage: UNK UNKNOWN, DAILY
     Route: 065
     Dates: start: 20030625, end: 20040131
  7. ALLOPURINOL. [Concomitant]
     Active Substance: ALLOPURINOL
     Indication: GOUT
     Dosage: UNK UNKNOWN, UNKNOWN
     Route: 065
     Dates: start: 20040715
  8. VERAPAMIL [Concomitant]
     Active Substance: VERAPAMIL HYDROCHLORIDE
     Indication: BLOOD PRESSURE MEASUREMENT
     Dosage: UNK UNKNOWN, UNKNOWN
     Route: 065
     Dates: start: 20040128
  9. MULTIVITAMINS [Concomitant]
     Active Substance: VITAMINS
     Indication: VITAMIN SUPPLEMENTATION
     Dosage: UNK UNKNOWN, UNKNOWN
     Route: 065
     Dates: start: 1990
  10. VITAMIN C [Concomitant]
     Active Substance: ASCORBIC ACID
     Indication: VITAMIN SUPPLEMENTATION
     Dosage: UNK UNKNOWN, UNKNOWN
     Route: 065
     Dates: start: 1990
  11. SIMVASTATIN. [Concomitant]
     Active Substance: SIMVASTATIN
     Indication: BLOOD CHOLESTEROL
     Dosage: UNK UNKNOWN, UNKNOWN
     Route: 065
     Dates: start: 2002
  12. ANDRODERM [Suspect]
     Active Substance: TESTOSTERONE
     Indication: ANDROGEN REPLACEMENT THERAPY
     Dosage: UNK UNKNOWN, DAILY
     Route: 062
     Dates: start: 20040131, end: 20050716

REACTIONS (1)
  - Pulmonary embolism [Not Recovered/Not Resolved]

NARRATIVE: CASE EVENT DATE: 20121211
